FAERS Safety Report 9179499 (Version 1)
Quarter: 2012Q4

REPORT INFORMATION
  Report Type: 
  Country: US (occurrence: US)
  Receive Date: 20121029
  Receipt Date: 20121029
  Transmission Date: 20130627
  Serious: No
  Sender: FDA-Public Use
  Company Number: US-JNJFOC-20121011189

PATIENT
  Age: 78 Year
  Sex: Female
  Weight: 49.44 kg

DRUGS (18)
  1. REMICADE [Suspect]
     Indication: RHEUMATOID ARTHRITIS
     Route: 042
     Dates: start: 2007
  2. TYLENOL [Concomitant]
     Indication: ARTHRITIS
     Route: 065
  3. LOPERAMIDE [Concomitant]
     Route: 065
  4. TRAMADOL [Concomitant]
     Route: 065
  5. FOSAMAX [Concomitant]
     Route: 065
  6. LATANOPROST [Concomitant]
     Route: 065
  7. SIMETHICONE [Concomitant]
     Route: 065
  8. SINGULAIR [Concomitant]
     Route: 065
  9. BRIMONIDINE [Concomitant]
     Route: 065
  10. POLYCARBOPHIL [Concomitant]
     Route: 065
  11. CALCIUM CITRATE [Concomitant]
     Route: 065
  12. FLONASE [Concomitant]
     Route: 065
  13. OMEPRAZOLE [Concomitant]
     Route: 065
  14. FOLIC ACID [Concomitant]
     Route: 065
  15. SUDAFED NOS [Concomitant]
     Route: 065
  16. METHOTREXATE [Concomitant]
     Route: 065
  17. LYRICA [Concomitant]
     Route: 065
  18. PREDNISONE [Concomitant]
     Route: 065

REACTIONS (2)
  - Cellulitis [Unknown]
  - Herpes zoster [Unknown]
